FAERS Safety Report 15661478 (Version 4)
Quarter: 2019Q1

REPORT INFORMATION
  Report Type: Report from Study
  Country: US (occurrence: US)
  Receive Date: 20181127
  Receipt Date: 20190204
  Transmission Date: 20190417
  Serious: Yes (Hospitalization, Other)
  Sender: FDA-Public Use
  Company Number: US-GILEAD-2018-0375550

PATIENT
  Age: 88 Year
  Sex: Female
  Weight: 71.2 kg

DRUGS (3)
  1. IDELALISIB [Suspect]
     Active Substance: IDELALISIB
     Indication: B-CELL LYMPHOMA
     Dosage: 100 MG, BID
     Route: 048
     Dates: start: 20170622, end: 20181111
  2. LOSARTAN. [Concomitant]
     Active Substance: LOSARTAN
     Dosage: UNK
     Dates: end: 201811
  3. IDELALISIB [Suspect]
     Active Substance: IDELALISIB
     Dosage: 100 MG, BID
     Route: 048
     Dates: start: 20190111

REACTIONS (18)
  - Asthenia [Not Recovered/Not Resolved]
  - Atrial fibrillation [Recovered/Resolved]
  - Diarrhoea [Recovering/Resolving]
  - Dehydration [Recovering/Resolving]
  - Disease progression [Not Recovered/Not Resolved]
  - Pleural effusion [Unknown]
  - Decreased appetite [Unknown]
  - Oedema peripheral [Recovered/Resolved]
  - Confusional state [Recovered/Resolved]
  - Myocardial infarction [Recovered/Resolved]
  - Electrolyte imbalance [Unknown]
  - Anaemia [Recovered/Resolved]
  - Blood sodium decreased [Recovered/Resolved]
  - Fatigue [Recovered/Resolved]
  - Electrolyte imbalance [Recovered/Resolved]
  - Cardiac output decreased [Unknown]
  - Anaemia [Unknown]
  - Fluid retention [Not Recovered/Not Resolved]

NARRATIVE: CASE EVENT DATE: 201811
